FAERS Safety Report 24297846 (Version 1)
Quarter: 2024Q3

REPORT INFORMATION
  Report Type: Spontaneous
  Country: ZA (occurrence: ZA)
  Receive Date: 20240909
  Receipt Date: 20240909
  Transmission Date: 20241017
  Serious: Yes (Hospitalization)
  Sender: MACLEODS
  Company Number: ZA-MACLEODS PHARMA-MAC2024049190

PATIENT

DRUGS (17)
  1. HYDROCHLOROTHIAZIDE\VALSARTAN [Suspect]
     Active Substance: HYDROCHLOROTHIAZIDE\VALSARTAN
     Indication: Hypertension
     Route: 048
  2. CLOPIDOGREL BISULFATE [Suspect]
     Active Substance: CLOPIDOGREL BISULFATE
     Indication: Anticoagulant therapy
     Route: 048
  3. ECOTRIN [Suspect]
     Active Substance: ASPIRIN
     Indication: Anticoagulant therapy
     Route: 048
  4. BISOPROLOL [Suspect]
     Active Substance: BISOPROLOL\BISOPROLOL FUMARATE
     Indication: Hypertension
     Route: 048
  5. GLUCOPHAGE XR [Suspect]
     Active Substance: METFORMIN HYDROCHLORIDE
     Indication: Diabetes mellitus
     Route: 048
  6. AMLODIPINE\HYDROCHLOROTHIAZIDE\VALSARTAN [Suspect]
     Active Substance: AMLODIPINE\HYDROCHLOROTHIAZIDE\VALSARTAN
     Indication: Hypertension
     Dosage: 10/160/12 MILLIGRAM
     Route: 048
  7. AMLODIPINE\HYDROCHLOROTHIAZIDE\VALSARTAN [Suspect]
     Active Substance: AMLODIPINE\HYDROCHLOROTHIAZIDE\VALSARTAN
     Dosage: 5/160/12.5 MG
     Route: 048
  8. GLICLAZIDE [Suspect]
     Active Substance: GLICLAZIDE
     Indication: Diabetes mellitus
     Route: 048
  9. ATORVASTATIN [Suspect]
     Active Substance: ATORVASTATIN
     Indication: Blood cholesterol increased
     Dosage: 20 MILLIGRAM
     Route: 048
  10. ATORVASTATIN [Suspect]
     Active Substance: ATORVASTATIN
     Dosage: 10 MILLIGRAM
     Route: 048
  11. GRISEOFULVIN [Suspect]
     Active Substance: GRISEOFULVIN
     Indication: Antifungal treatment
     Route: 048
  12. HYDROCHLOROTHIAZIDE\VALSARTAN [Suspect]
     Active Substance: HYDROCHLOROTHIAZIDE\VALSARTAN
     Indication: Hypertension
     Route: 048
  13. METFORMIN HYDROCHLORIDE [Suspect]
     Active Substance: METFORMIN HYDROCHLORIDE
     Indication: Diabetes mellitus
     Route: 048
  14. CELECOXIB [Suspect]
     Active Substance: CELECOXIB
     Indication: Pain
     Route: 048
  15. ESOMEPRAZOLE MAGNESIUM [Suspect]
     Active Substance: ESOMEPRAZOLE MAGNESIUM
     Indication: Gastrooesophageal reflux disease
     Route: 048
  16. ACETAMINOPHEN\CODEINE PHOSPHATE\MEPROBAMATE [Suspect]
     Active Substance: ACETAMINOPHEN\CODEINE PHOSPHATE\MEPROBAMATE
     Indication: Pain
     Dosage: AS  DIRECTED
     Route: 048
  17. BISOPROLOL FUMARATE [Suspect]
     Active Substance: BISOPROLOL FUMARATE
     Indication: Hypertension
     Route: 048

REACTIONS (1)
  - Malaise [Unknown]
